FAERS Safety Report 12855971 (Version 1)
Quarter: 2016Q4

REPORT INFORMATION
  Report Type: Spontaneous
  Country: US (occurrence: US)
  Receive Date: 20161017
  Receipt Date: 20161017
  Transmission Date: 20170207
  Serious: Yes (Other)
  Sender: FDA-Public Use
  Company Number: None

PATIENT
  Age: 51 Year
  Sex: Female
  Weight: 118.8 kg

DRUGS (10)
  1. VITAMIN K [Concomitant]
     Active Substance: PHYTONADIONE
  2. PROGESTERONE. [Concomitant]
     Active Substance: PROGESTERONE
  3. PANTOPRAZOLE [Concomitant]
     Active Substance: PANTOPRAZOLE SODIUM
  4. IRON [Concomitant]
     Active Substance: IRON
  5. SPIRONOLACTONE. [Concomitant]
     Active Substance: SPIRONOLACTONE
  6. SERMORELIN ACETATE/GHRP(2) + (6) WELLSPHARMACY NETWORK [Suspect]
     Active Substance: GHRP-6\PRALMORELIN\SERMORELIN ACETATE
     Indication: INSULIN-LIKE GROWTH FACTOR
     Dosage: ?          QUANTITY:1 INJECTION(S);?
     Route: 030
     Dates: start: 20151130, end: 20160911
  7. VITAMIN D [Concomitant]
     Active Substance: CHOLECALCIFEROL
  8. VITAMIN C [Concomitant]
     Active Substance: ASCORBIC ACID
  9. ESTRODIM [Concomitant]
  10. VITAMIN B (METHYLATED) [Concomitant]

REACTIONS (4)
  - Product lot number issue [None]
  - Urticaria [None]
  - Rash pustular [None]
  - Product quality issue [None]

NARRATIVE: CASE EVENT DATE: 20160821
